FAERS Safety Report 17377576 (Version 1)
Quarter: 2020Q1

REPORT INFORMATION
  Report Type: Spontaneous
  Country: DE (occurrence: DE)
  Receive Date: 20200206
  Receipt Date: 20200206
  Transmission Date: 20200409
  Serious: Yes (Hospitalization)
  Sender: FDA-Public Use
  Company Number: DE-MYLANLABS-2020M1013135

PATIENT
  Age: 82 Year
  Sex: Female

DRUGS (9)
  1. FENTANYL. [Concomitant]
     Active Substance: FENTANYL
     Dosage: 25 ?G/H, WECHSEL ALLE 3 D, PFLASTER TRANSDERMAL
     Route: 062
  2. CALCIUM [Concomitant]
     Active Substance: CALCIUM
     Dosage: 500 MG, 2-0-0-0
  3. FOLSAEURE [Concomitant]
     Active Substance: FOLIC ACID
     Dosage: 0.4 MG, 1-0-0-0
  4. COLECALCIFEROL [Concomitant]
     Active Substance: CHOLECALCIFEROL
     Dosage: 1000 IE, 0-1-0-0
  5. CLOPIDOGREL [Suspect]
     Active Substance: CLOPIDOGREL BISULFATE
     Indication: PRODUCT USED FOR UNKNOWN INDICATION
     Dosage: 75 MG, ABGESETZT AM CA. 23.01.2018
  6. ACETYLSALICYLIC ACID [Suspect]
     Active Substance: ASPIRIN
     Indication: PRODUCT USED FOR UNKNOWN INDICATION
     Dosage: 100 MG, 0-1-0-0
  7. LEVOTHYROXINE SODIUM. [Concomitant]
     Active Substance: LEVOTHYROXINE SODIUM
     Dosage: 100 ?G, 1-0-0-0
  8. METAMIZOL                          /06276701/ [Concomitant]
     Active Substance: METAMIZOLE
     Dosage: NK MG, 20-0-0-0; UND BEI BEDARF, TROPFEN
  9. DULCOLAX (BISACODYL) [Concomitant]
     Active Substance: BISACODYL
     Dosage: NK MG, 1-2/D, DRAGEES

REACTIONS (3)
  - Haematochezia [Unknown]
  - Fatigue [Unknown]
  - Anaemia [Unknown]
